FAERS Safety Report 5639889-7 (Version None)
Quarter: 2008Q1

REPORT INFORMATION
  Report Type: 
  Country: None (occurrence: None)
  Receive Date: 20080227
  Receipt Date: 20080218
  Transmission Date: 20080703
  Serious: Yes (Life-Threatening)
  Sender: FDA-Public Use
  Company Number: FR-JNJFOC-20080203795

PATIENT
  Sex: Male

DRUGS (16)
  1. SUFENTA [Suspect]
     Indication: SEDATION
     Route: 042
  2. HALDOL [Suspect]
     Indication: AGITATION
     Route: 042
  3. KETAMINE HCL [Suspect]
     Indication: SEDATION
     Route: 042
  4. HYPNOVEL [Suspect]
     Indication: SEDATION
     Route: 042
  5. CATAPRES [Suspect]
     Indication: DRUG USE FOR UNKNOWN INDICATION
     Route: 042
  6. ERYTHROMYCIN [Suspect]
     Indication: LUNG DISORDER
     Route: 042
  7. ATARAX [Suspect]
     Indication: DRUG USE FOR UNKNOWN INDICATION
     Route: 042
  8. DIPRIVAN [Suspect]
     Route: 042
  9. DIPRIVAN [Suspect]
     Indication: SEDATION
     Route: 042
  10. NIMBEX [Concomitant]
     Indication: TACHYPNOEA
     Route: 042
  11. LOVENOX [Concomitant]
     Indication: DRUG USE FOR UNKNOWN INDICATION
     Route: 058
  12. TAZOCILLINE [Concomitant]
     Indication: LUNG DISORDER
     Route: 042
  13. ZYVOX [Concomitant]
     Indication: LUNG DISORDER
     Route: 042
  14. SEROPRAM [Concomitant]
     Indication: DEPRESSION
     Route: 042
  15. ROCEPHIN [Concomitant]
     Indication: LUNG DISORDER
     Route: 042
  16. TERCIAN [Concomitant]
     Indication: AGITATION
     Route: 042

REACTIONS (2)
  - BRADYCARDIA [None]
  - CARDIAC ARREST [None]
